FAERS Safety Report 17823324 (Version 10)
Quarter: 2022Q4

REPORT INFORMATION
  Report Type: Report from Study
  Country: ES (occurrence: ES)
  Receive Date: 20200526
  Receipt Date: 20221227
  Transmission Date: 20230113
  Serious: Yes (Hospitalization)
  Sender: FDA-Public Use
  Company Number: NVSC2020ES028429

PATIENT
  Age: 61 Year
  Sex: Male
  Weight: 95.4 kg

DRUGS (7)
  1. GEMCITABINE [Suspect]
     Active Substance: GEMCITABINE
     Indication: B-cell lymphoma
     Dosage: 2240 MG, ONCE
     Route: 042
     Dates: start: 20200114, end: 20200121
  2. CISPLATIN [Suspect]
     Active Substance: CISPLATIN
     Indication: B-cell lymphoma
     Dosage: 168 MG, ONCE
     Route: 042
     Dates: start: 20200114
  3. RITUXIMAB [Suspect]
     Active Substance: RITUXIMAB
     Indication: B-cell lymphoma
     Dosage: 840 MG ONCE
     Route: 042
     Dates: start: 20200114
  4. ALLOPURINOL [Concomitant]
     Active Substance: ALLOPURINOL
     Indication: Prophylaxis
     Dosage: UNK
     Route: 065
     Dates: start: 20200108, end: 20200220
  5. ONDANSETRON [Concomitant]
     Active Substance: ONDANSETRON
     Indication: Prophylaxis of nausea and vomiting
     Dosage: UNK
     Route: 065
     Dates: start: 20200113, end: 20211123
  6. MAGNOGENE [Concomitant]
     Indication: General physical condition
     Dosage: 250 MG/M2, QD
     Route: 065
     Dates: start: 20200113, end: 20200117
  7. PYRIDOXINE HYDROCHLORIDE [Concomitant]
     Active Substance: PYRIDOXINE HYDROCHLORIDE
     Indication: Prophylaxis
     Dosage: UNK
     Route: 065
     Dates: start: 20200108, end: 20211123

REACTIONS (3)
  - Dysarthria [Recovered/Resolved]
  - Neurotoxicity [Recovered/Resolved]
  - Headache [Recovered/Resolved]

NARRATIVE: CASE EVENT DATE: 20200119
